FAERS Safety Report 5969570-6 (Version None)
Quarter: 2008Q4

REPORT INFORMATION
  Report Type: 
  Country: None (occurrence: None)
  Receive Date: 20081126
  Receipt Date: 20080919
  Transmission Date: 20090506
  Serious: No
  Sender: FDA-Public Use
  Company Number: US-ABBOTT-08P-163-0477367-00

PATIENT
  Sex: Male

DRUGS (9)
  1. SIMCOR [Suspect]
     Indication: BLOOD CHOLESTEROL INCREASED
     Dosage: 1000/20MG
     Dates: start: 20080829
  2. SIMCOR [Suspect]
     Dosage: 1000MG/20MG EVERY OTHER NIGHT
  3. ATENOLOL [Concomitant]
     Indication: DRUG USE FOR UNKNOWN INDICATION
  4. SERTRALINE [Concomitant]
     Indication: DRUG USE FOR UNKNOWN INDICATION
  5. RANITIDINE [Concomitant]
     Indication: DRUG USE FOR UNKNOWN INDICATION
  6. CLONAZEPAM [Concomitant]
     Indication: DRUG USE FOR UNKNOWN INDICATION
  7. ASCORBIC ACID [Concomitant]
     Indication: DRUG USE FOR UNKNOWN INDICATION
  8. M.V.I. [Concomitant]
     Indication: DRUG USE FOR UNKNOWN INDICATION
  9. POLYCARBOPHIL CALCIUM [Concomitant]
     Indication: DRUG USE FOR UNKNOWN INDICATION

REACTIONS (1)
  - SEDATION [None]
